FAERS Safety Report 4987567-X (Version None)
Quarter: 2006Q2

REPORT INFORMATION
  Report Type: 
  Country: None (occurrence: None)
  Receive Date: 20060501
  Receipt Date: 20060420
  Transmission Date: 20061013
  Serious: Yes (Other)
  Sender: FDA-Public Use
  Company Number: JP-JNJFOC-20050606796

PATIENT
  Sex: Male
  Weight: 61 kg

DRUGS (11)
  1. REMICADE [Suspect]
     Route: 042
  2. REMICADE [Suspect]
     Route: 042
  3. REMICADE [Suspect]
     Indication: RHEUMATOID ARTHRITIS
     Route: 042
  4. RHEUMATREX [Suspect]
     Route: 048
  5. RHEUMATREX [Suspect]
     Indication: RHEUMATOID ARTHRITIS
     Route: 048
  6. PREDONINE [Concomitant]
     Indication: RHEUMATOID ARTHRITIS
     Route: 048
  7. KENTAN [Concomitant]
     Indication: RHEUMATOID ARTHRITIS
     Route: 048
  8. AZULFIDINE EN-TABS [Concomitant]
     Indication: RHEUMATOID ARTHRITIS
     Route: 048
  9. ASMEDIN [Concomitant]
     Route: 048
  10. GLORIAMIN [Concomitant]
     Route: 048
  11. GLORIAMIN [Concomitant]
     Route: 048

REACTIONS (2)
  - ATYPICAL MYCOBACTERIAL INFECTION [None]
  - MYCOBACTERIUM AVIUM COMPLEX INFECTION [None]
